FAERS Safety Report 16077090 (Version 1)
Quarter: 2019Q2

REPORT INFORMATION
  Report Type: Spontaneous
  Country: US (occurrence: US)
  Receive Date: 20190314
  Receipt Date: 20190314
  Transmission Date: 20190711
  Serious: Yes (Death)
  Sender: FDA-Public Use
  Company Number: None

PATIENT
  Sex: Female

DRUGS (19)
  1. METOPROLOL. [Concomitant]
     Active Substance: METOPROLOL
  2. TYLENOL [Concomitant]
     Active Substance: ACETAMINOPHEN
  3. ATIVAN [Concomitant]
     Active Substance: LORAZEPAM
  4. PHOSLO [Concomitant]
     Active Substance: CALCIUM ACETATE
  5. PROCARDIA [Concomitant]
     Active Substance: NIFEDIPINE
  6. IMODIUM [Concomitant]
     Active Substance: LOPERAMIDE HYDROCHLORIDE
  7. SENSIPAR [Concomitant]
     Active Substance: CINACALCET HYDROCHLORIDE
  8. SPS [Concomitant]
     Active Substance: SODIUM POLYSTYRENE SULFONATE
  9. CLONAZEPAM. [Concomitant]
     Active Substance: CLONAZEPAM
  10. EMLA [Concomitant]
     Active Substance: LIDOCAINE\PRILOCAINE
  11. RENAL SOFTGET [Concomitant]
  12. REQUIP [Concomitant]
     Active Substance: ROPINIROLE HYDROCHLORIDE
  13. TUMS [Concomitant]
     Active Substance: CALCIUM CARBONATE
  14. ZOLPIDEM [Concomitant]
     Active Substance: ZOLPIDEM\ZOLPIDEM TARTRATE
  15. FAMOTIDINE. [Concomitant]
     Active Substance: FAMOTIDINE
  16. SNYHROID [Concomitant]
  17. VELTASSA [Suspect]
     Active Substance: PATIROMER
     Indication: HYPERKALAEMIA
     Dosage: ?          OTHER FREQUENCY:1P IN 1/3 WATER;?
     Route: 048
     Dates: start: 20180416
  18. ABILIFY [Concomitant]
     Active Substance: ARIPIPRAZOLE
  19. EFFEXOR [Concomitant]
     Active Substance: VENLAFAXINE HYDROCHLORIDE

REACTIONS (1)
  - Death [None]
